FAERS Safety Report 25547713 (Version 1)
Quarter: 2025Q3

REPORT INFORMATION
  Report Type: Spontaneous
  Country: JP (occurrence: JP)
  Receive Date: 20250714
  Receipt Date: 20250714
  Transmission Date: 20251021
  Serious: Yes (Death, Other)
  Sender: CHEPLAPHARM
  Company Number: JP-CHEPLA-2025008485

PATIENT
  Age: 71 Year
  Sex: Female

DRUGS (1)
  1. HYDROXYUREA [Suspect]
     Active Substance: HYDROXYUREA
     Indication: Essential thrombocythaemia

REACTIONS (5)
  - Lower respiratory tract infection [Fatal]
  - General physical health deterioration [Fatal]
  - Laryngeal necrosis [Not Recovered/Not Resolved]
  - Bacterial infection [Unknown]
  - Fungal infection [Unknown]
